FAERS Safety Report 21796805 (Version 11)
Quarter: 2024Q4

REPORT INFORMATION
  Report Type: Report from Study
  Country: US (occurrence: US)
  Receive Date: 20221230
  Receipt Date: 20241202
  Transmission Date: 20250115
  Serious: Yes (Hospitalization, Other)
  Sender: ACADIA PHARMACEUTICALS
  Company Number: US-ACADIA PHARMACEUTICALS INC.-ACA-2022-PIM-004258

PATIENT
  Age: 67 Year
  Sex: Male

DRUGS (32)
  1. NUPLAZID [Suspect]
     Active Substance: PIMAVANSERIN TARTRATE
     Indication: Parkinson^s disease psychosis
     Dosage: 34 MILLIGRAM, QD
     Route: 048
     Dates: start: 20221205
  2. NUPLAZID [Suspect]
     Active Substance: PIMAVANSERIN TARTRATE
     Indication: Parkinson^s disease
     Dosage: 34 MILLIGRAM, QD
     Route: 048
  3. NUPLAZID [Suspect]
     Active Substance: PIMAVANSERIN TARTRATE
     Dosage: 34 MILLIGRAM, QD
     Route: 048
  4. BENAZEPRIL [Concomitant]
     Active Substance: BENAZEPRIL HYDROCHLORIDE
  5. CARBIDOPA\LEVODOPA [Concomitant]
     Active Substance: CARBIDOPA\LEVODOPA
  6. CELECOXIB [Concomitant]
     Active Substance: CELECOXIB
  7. EFINACONAZOLE [Concomitant]
     Active Substance: EFINACONAZOLE
  8. FENOFIBRATE [Concomitant]
     Active Substance: FENOFIBRATE
  9. FLUTICASONE [Concomitant]
     Active Substance: FLUTICASONE
     Dosage: SPRAY
     Route: 045
  10. GABAPENTIN [Concomitant]
     Active Substance: GABAPENTIN
  11. HYDROXYZINE [Concomitant]
     Active Substance: HYDROXYZINE HYDROCHLORIDE
  12. METOPROLOL [Concomitant]
     Active Substance: METOPROLOL
  13. SIMVASTATIN [Concomitant]
     Active Substance: SIMVASTATIN
  14. TADALAFIL [Concomitant]
     Active Substance: TADALAFIL
  15. CALCIUM GLUCONATE [Concomitant]
     Active Substance: CALCIUM GLUCONATE
  16. CHOLECALCIFEROL [Concomitant]
     Active Substance: CHOLECALCIFEROL
  17. MAGNESIUM [Concomitant]
     Active Substance: MAGNESIUM
  18. HERBALS\TURMERIC [Concomitant]
     Active Substance: HERBALS\TURMERIC
  19. ESCITALOPRAM [Concomitant]
     Active Substance: ESCITALOPRAM OXALATE
  20. ELIQUIS [Concomitant]
     Active Substance: APIXABAN
  21. MIDODRINE [Concomitant]
     Active Substance: MIDODRINE
  22. VITAMIN D NOS [Concomitant]
     Active Substance: CHOLECALCIFEROL\ERGOCALCIFEROL
  23. ACETAMINOPHEN [Concomitant]
     Active Substance: ACETAMINOPHEN
  24. ALPRAZOLAM [Concomitant]
     Active Substance: ALPRAZOLAM
  25. ASPIRIN [Concomitant]
     Active Substance: ASPIRIN
  26. DICLOFENAC [Concomitant]
     Active Substance: DICLOFENAC
  27. JUBLIA [Concomitant]
     Active Substance: EFINACONAZOLE
  28. MODAFINIL [Concomitant]
     Active Substance: MODAFINIL
  29. OXYCODONE [Concomitant]
     Active Substance: OXYCODONE
  30. TYLENOL [Concomitant]
     Active Substance: ACETAMINOPHEN
     Dosage: 500MG E/S
  31. TRAZODONE [Concomitant]
     Active Substance: TRAZODONE HYDROCHLORIDE
     Dosage: 50 MILLIGRAM
  32. SENNA LEAF [Concomitant]
     Active Substance: SENNA LEAF
     Dosage: 8.6MG

REACTIONS (20)
  - Transient ischaemic attack [Recovered/Resolved]
  - Myocardial infarction [Unknown]
  - Neuropathy peripheral [Not Recovered/Not Resolved]
  - Hallucination [Not Recovered/Not Resolved]
  - Hallucination [Not Recovered/Not Resolved]
  - Hallucination [Not Recovered/Not Resolved]
  - Sleep talking [Not Recovered/Not Resolved]
  - Arthralgia [Not Recovered/Not Resolved]
  - Pain in extremity [Not Recovered/Not Resolved]
  - Nonspecific reaction [Not Recovered/Not Resolved]
  - Nonspecific reaction [Unknown]
  - Product dose omission issue [Recovered/Resolved]
  - Abnormal behaviour [Not Recovered/Not Resolved]
  - Panic attack [Not Recovered/Not Resolved]
  - Abnormal dreams [Not Recovered/Not Resolved]
  - Nonspecific reaction [Not Recovered/Not Resolved]
  - Product dose omission issue [Recovered/Resolved]
  - Nonspecific reaction [Unknown]
  - Confusional state [Not Recovered/Not Resolved]
  - Constipation [Not Recovered/Not Resolved]

NARRATIVE: CASE EVENT DATE: 20221205
